FAERS Safety Report 21685031 (Version 2)
Quarter: 2023Q1

REPORT INFORMATION
  Report Type: Report from Study
  Country: US (occurrence: US)
  Receive Date: 20221206
  Receipt Date: 20230227
  Transmission Date: 20230417
  Serious: Yes (Other)
  Sender: FDA-Public Use
  Company Number: US-ABBVIE-4223923

PATIENT
  Sex: Female

DRUGS (2)
  1. RINVOQ [Suspect]
     Active Substance: UPADACITINIB
     Indication: Psoriasis
     Route: 048
  2. RINVOQ [Suspect]
     Active Substance: UPADACITINIB
     Indication: Psoriasis
     Route: 048

REACTIONS (6)
  - Blood calcium increased [Unknown]
  - Symptom recurrence [Recovered/Resolved]
  - Joint dislocation [Unknown]
  - Road traffic accident [Recovered/Resolved]
  - Foot fracture [Recovered/Resolved]
  - Post procedural complication [Unknown]
